FAERS Safety Report 8358535-5 (Version None)
Quarter: 2012Q2

REPORT INFORMATION
  Report Type: 
  Country: None (occurrence: None)
  Receive Date: 20120514
  Receipt Date: 20120511
  Transmission Date: 20120825
  Serious: No
  Sender: FDA-Public Use
  Company Number: US-PFIZER INC-2004035532

PATIENT
  Sex: Female

DRUGS (4)
  1. BEXTRA [Suspect]
     Indication: OSTEOARTHRITIS
     Dosage: 20 MG, 1X/DAY
     Dates: start: 20040501
  2. ALENDRONATE SODIUM [Concomitant]
     Route: 065
  3. LIPITOR [Suspect]
     Indication: BLOOD CHOLESTEROL INCREASED
     Dosage: 10 MG, 1X/DAY
     Route: 048
  4. BEXTRA [Suspect]
     Dosage: 10 MG, 2X/DAY
     Dates: start: 20040101

REACTIONS (6)
  - BACK PAIN [None]
  - OSTEOARTHRITIS [None]
  - DRUG INEFFECTIVE [None]
  - NERVOUS SYSTEM DISORDER [None]
  - JOINT SWELLING [None]
  - PAIN IN EXTREMITY [None]
